FAERS Safety Report 9395486 (Version 2)
Quarter: 2013Q3

REPORT INFORMATION
  Report Type: Spontaneous
  Country: US (occurrence: US)
  Receive Date: 20130711
  Receipt Date: 20130816
  Transmission Date: 20140515
  Serious: No
  Sender: FDA-Public Use
  Company Number: US-ASTELLAS-2013US007195

PATIENT
  Sex: Female

DRUGS (2)
  1. PROGRAF [Suspect]
     Indication: LIVER TRANSPLANT
     Dosage: 7 MG IN THE MORNING AND 6 MG IN THE AFTERNOON
     Route: 048
     Dates: start: 20130205
  2. PROGRAF [Suspect]
     Dosage: UNK
     Route: 048

REACTIONS (1)
  - No adverse event [Unknown]
